FAERS Safety Report 4594637-7 (Version None)
Quarter: 2005Q1

REPORT INFORMATION
  Report Type: 
  Country: None (occurrence: None)
  Receive Date: 20050301
  Receipt Date: 20041012
  Transmission Date: 20050727
  Serious: Yes (Hospitalization)
  Sender: FDA-Public Use
  Company Number: US-BRISTOL-MYERS SQUIBB COMPANY-12764361

PATIENT
  Age: 59 Year
  Sex: Male

DRUGS (4)
  1. ERBITUX [Suspect]
     Indication: COLON CANCER STAGE IV
     Route: 042
     Dates: start: 20040908, end: 20040908
  2. BENADRYL [Concomitant]
     Indication: PREMEDICATION
     Route: 042
     Dates: start: 20040908, end: 20040908
  3. DECADRON [Concomitant]
     Indication: PREMEDICATION
     Route: 042
     Dates: start: 20040908, end: 20040908
  4. TAGAMET [Concomitant]
     Indication: PREMEDICATION
     Route: 042
     Dates: start: 20040908, end: 20040908

REACTIONS (1)
  - INFUSION RELATED REACTION [None]
